FAERS Safety Report 24244548 (Version 1)
Quarter: 2024Q3

REPORT INFORMATION
  Report Type: Report from Study
  Country: DE (occurrence: DE)
  Receive Date: 20240823
  Receipt Date: 20240823
  Transmission Date: 20241017
  Serious: Yes (Life-Threatening, Other)
  Sender: JAZZ
  Company Number: DE-JAZZ PHARMACEUTICALS-2021-DE-006651

PATIENT

DRUGS (7)
  1. CPX-351 (CYTARABINE AND DAUNORUBICIN) [Suspect]
     Active Substance: CYTARABINE\DAUNORUBICIN HYDROCHLORIDE
     Indication: Myelodysplastic syndrome
     Dosage: 288 MILLIGRAM, Q3W
     Route: 042
     Dates: start: 20210323, end: 20210327
  2. PIPERACILLIN SODIUM\TAZOBACTAM SODIUM [Concomitant]
     Active Substance: PIPERACILLIN SODIUM\TAZOBACTAM SODIUM
     Indication: Panniculitis
     Dosage: 4.5 GRAM, TID
     Dates: start: 20210310, end: 20210318
  3. PIPERACILLIN SODIUM\TAZOBACTAM SODIUM [Concomitant]
     Active Substance: PIPERACILLIN SODIUM\TAZOBACTAM SODIUM
     Indication: Pyrexia
     Dosage: 4.5 GRAM, BID
     Route: 042
     Dates: start: 20210329, end: 20210330
  4. NOVALGIN (METAMIZOLE SODIUM) [Concomitant]
     Active Substance: METAMIZOLE SODIUM
     Indication: Pyrexia
     Dosage: 30 GRAM, PRN
     Route: 048
     Dates: start: 20210310, end: 20210410
  5. PREDNISOLONE [Concomitant]
     Active Substance: PREDNISOLONE
     Indication: Pyrexia
     Dosage: 50 MILLIGRAM, QD
     Route: 048
     Dates: start: 20210316, end: 20210321
  6. MEROPENEM [Concomitant]
     Active Substance: MEROPENEM
     Indication: Pyrexia
     Dosage: 1 GRAM, TID
     Route: 042
     Dates: start: 20210330, end: 20210409
  7. ANIDULAFUNGIN [Concomitant]
     Active Substance: ANIDULAFUNGIN
     Indication: Pyrexia
     Dosage: 100 MILLIGRAM, QD
     Route: 042
     Dates: start: 20210410

REACTIONS (2)
  - Sepsis [Not Recovered/Not Resolved]
  - Haemophagocytic lymphohistiocytosis [Not Recovered/Not Resolved]

NARRATIVE: CASE EVENT DATE: 20210411
